FAERS Safety Report 5551493-8 (Version None)
Quarter: 2007Q4

REPORT INFORMATION
  Report Type: 
  Country: None (occurrence: None)
  Receive Date: 20071128
  Receipt Date: 20070718
  Transmission Date: 20080405
  Serious: Yes (Hospitalization, Other)
  Sender: FDA-Public Use
  Company Number: 2007060746

PATIENT
  Sex: Male

DRUGS (3)
  1. LIPITOR [Suspect]
     Dates: start: 20070101
  2. ZETIA [Concomitant]
  3. METFOMRIN (METFORMIN) [Concomitant]

REACTIONS (3)
  - INFLUENZA LIKE ILLNESS [None]
  - RENAL FAILURE ACUTE [None]
  - RHABDOMYOLYSIS [None]
